FAERS Safety Report 11752514 (Version 3)
Quarter: 2016Q1

REPORT INFORMATION
  Report Type: Spontaneous
  Country: HU (occurrence: HU)
  Receive Date: 20151119
  Receipt Date: 20160111
  Transmission Date: 20160525
  Serious: Yes (Hospitalization, Other)
  Sender: FDA-Public Use
  Company Number: HU-PFIZER INC-2015215269

PATIENT
  Age: 65 Year
  Sex: Female

DRUGS (15)
  1. METFOGAMMA [Concomitant]
     Indication: DIABETES MELLITUS
     Dosage: (850) 1-0-1
  2. SUTENT [Suspect]
     Active Substance: SUNITINIB MALATE
     Dosage: 37.5 MG, 1X/DAY, CYCLIC (2/1 SCHEMA)
     Route: 048
     Dates: start: 20150810, end: 2015
  3. NORVASC [Concomitant]
     Active Substance: AMLODIPINE BESYLATE
     Indication: HYPERTENSION
     Dosage: (5) 1X1
  4. IMOVANE [Concomitant]
     Active Substance: ZOPICLONE
     Indication: SLEEP DISORDER
     Dosage: (7.5) IN THE EVENING 1X1
  5. SUTENT [Suspect]
     Active Substance: SUNITINIB MALATE
     Indication: RENAL CANCER
     Dosage: 37.5 MG, 1X/DAY, CYCLIC (2/1 SCHEMA)
     Route: 048
     Dates: start: 20150518, end: 20150614
  6. SUTENT [Suspect]
     Active Substance: SUNITINIB MALATE
     Dosage: 37.5 MG, 1X/DAY, CYCLIC (2/1 SCHEMA)
     Route: 048
     Dates: start: 20150921, end: 20151001
  7. ATORVA TEVA [Concomitant]
     Indication: HYPERCHOLESTEROLAEMIA
     Dosage: (20) 0-0-1
  8. VASCOTASIN [Concomitant]
     Indication: VASODILATATION
  9. MINIPRESS [Concomitant]
     Active Substance: PRAZOSIN HYDROCHLORIDE
     Indication: HYPERTENSION
     Dosage: 1X1/2
  10. LISONORM [Concomitant]
     Indication: HYPERTENSION
     Dosage: 0-0-1/2
  11. VASCOTASIN [Concomitant]
     Indication: HYPERTENSION
     Dosage: (35) 1-0-1
  12. SUTENT [Suspect]
     Active Substance: SUNITINIB MALATE
     Dosage: 37.5 MG, 1X/DAY, CYCLIC (2/1 SCHEMA)
     Route: 048
     Dates: start: 20150629, end: 2015
  13. NITRO-DUR [Concomitant]
     Active Substance: NITROGLYCERIN
     Indication: ANGINA PECTORIS
     Dosage: (0.4) 1X1
  14. L-THYROXIN [Concomitant]
     Active Substance: LEVOTHYROXINE SODIUM
     Indication: THYROID HORMONE REPLACEMENT THERAPY
     Dosage: (100) 1X1
  15. METOPROLOL. [Concomitant]
     Active Substance: METOPROLOL
     Indication: HYPERTENSION
     Dosage: 1X1

REACTIONS (18)
  - Decreased appetite [Recovered/Resolved]
  - Dizziness [Not Recovered/Not Resolved]
  - Pain in extremity [Recovered/Resolved]
  - Nausea [Recovered/Resolved]
  - Diarrhoea [Recovered/Resolved]
  - Pruritus [Recovered/Resolved]
  - Weight decreased [Recovered/Resolved]
  - Injury [Recovered/Resolved]
  - Nasal mucosal ulcer [Recovered/Resolved]
  - Fatigue [Not Recovered/Not Resolved]
  - Nausea [Recovered/Resolved]
  - Wound [Recovered/Resolved]
  - Nail bed infection [Recovered/Resolved]
  - Skin disorder [Recovered/Resolved]
  - Pyrexia [Recovered/Resolved]
  - Petechiae [Not Recovered/Not Resolved]
  - Fall [Unknown]
  - Haemorrhage subcutaneous [Not Recovered/Not Resolved]

NARRATIVE: CASE EVENT DATE: 2015
